FAERS Safety Report 4808633-5 (Version None)
Quarter: 2005Q4

REPORT INFORMATION
  Report Type: 
  Country: None (occurrence: None)
  Receive Date: 20051021
  Receipt Date: 20040806
  Transmission Date: 20060501
  Serious: Yes (Other)
  Sender: FDA-Public Use
  Company Number: AU_040807979

PATIENT
  Age: 33 Year
  Sex: Male

DRUGS (2)
  1. OLANZAPINE [Suspect]
     Indication: PSYCHOTIC DISORDER
     Dosage: 10 MG/2 DAY
     Route: 048
     Dates: start: 20040621
  2. PARACETAMOL (PARACETAMOL) [Concomitant]
     Dosage: PO

REACTIONS (2)
  - NEUTROPHIL COUNT DECREASED [None]
  - PLATELET COUNT DECREASED [None]
